FAERS Safety Report 19034110 (Version 2)
Quarter: 2021Q2

REPORT INFORMATION
  Report Type: Spontaneous
  Country: JP (occurrence: JP)
  Receive Date: 20210319
  Receipt Date: 20210531
  Transmission Date: 20210717
  Serious: Yes (Death, Life-Threatening, Hospitalization, Disabling, Other)
  Sender: FDA-Public Use
  Company Number: JP-ASTRAZENECA-2021A151148

PATIENT
  Age: 77 Year
  Sex: Female
  Weight: 52 kg

DRUGS (31)
  1. LYNPARZA [Suspect]
     Active Substance: OLAPARIB
     Indication: OVARIAN CANCER RECURRENT
     Dosage: DOSE UNKNOWN
     Route: 048
     Dates: start: 20190222, end: 20190713
  2. E KEPPRA [Suspect]
     Active Substance: LEVETIRACETAM
     Indication: HAEMORRHAGE INTRACRANIAL
     Route: 041
     Dates: start: 20210213, end: 20210223
  3. XARELTO [Concomitant]
     Active Substance: RIVAROXABAN
     Indication: ATRIAL FIBRILLATION
     Route: 048
     Dates: end: 20210213
  4. CARVEDILOL. [Concomitant]
     Active Substance: CARVEDILOL
     Indication: HYPERTENSION
     Route: 048
     Dates: end: 20210213
  5. ZOLPIDEM TARTRATE. [Concomitant]
     Active Substance: ZOLPIDEM TARTRATE
     Indication: INSOMNIA
     Route: 048
     Dates: start: 20181220, end: 2021
  6. SPIRONOLACTONE. [Suspect]
     Active Substance: SPIRONOLACTONE
     Indication: ANAEMIA
     Route: 048
     Dates: start: 20200314, end: 20210213
  7. PRIMPERAN [Suspect]
     Active Substance: METOCLOPRAMIDE HYDROCHLORIDE
     Indication: ANAEMIA
     Route: 041
     Dates: start: 20201228, end: 20210118
  8. ACELIO [Suspect]
     Active Substance: ACETAMINOPHEN
     Indication: PYREXIA
     Route: 041
     Dates: start: 20210216, end: 20210308
  9. ATOZET [Concomitant]
     Active Substance: ATORVASTATIN CALCIUM\EZETIMIBE
     Indication: DYSLIPIDAEMIA
     Route: 048
     Dates: end: 20210213
  10. LYNPARZA [Suspect]
     Active Substance: OLAPARIB
     Indication: OVARIAN CANCER RECURRENT
     Dosage: DOSE UNKNOWN
     Route: 048
     Dates: start: 20181213, end: 20190124
  11. AZOSEMIDE [Suspect]
     Active Substance: AZOSEMIDE
     Indication: ANAEMIA
     Route: 048
     Dates: start: 20200222, end: 20210213
  12. PIMOBENDAN [Suspect]
     Active Substance: PIMOBENDAN
     Indication: ANAEMIA
     Route: 048
     Dates: start: 20210105, end: 20210214
  13. ENTRESTO [Suspect]
     Active Substance: SACUBITRIL\VALSARTAN
     Indication: ANAEMIA
     Route: 048
     Dates: start: 20210114, end: 20210214
  14. FAMOTIDINE. [Suspect]
     Active Substance: FAMOTIDINE
     Indication: ULCER
     Route: 041
     Dates: start: 20210219, end: 20210308
  15. LYNPARZA [Suspect]
     Active Substance: OLAPARIB
     Indication: OVARIAN CANCER RECURRENT
     Dosage: DOSE UNKNOWN
     Route: 048
     Dates: start: 20190810, end: 20190824
  16. LYNPARZA [Suspect]
     Active Substance: OLAPARIB
     Indication: OVARIAN CANCER RECURRENT
     Dosage: DOSE UNKNOWN
     Route: 048
     Dates: start: 20190909, end: 20191221
  17. METOCLOPRAMIDE. [Suspect]
     Active Substance: METOCLOPRAMIDE
     Indication: NAUSEA
     Route: 048
     Dates: start: 20181213, end: 20190405
  18. KYTRIL [Suspect]
     Active Substance: GRANISETRON HYDROCHLORIDE
     Indication: NAUSEA
     Route: 048
     Dates: start: 20181220, end: 20190321
  19. LASIX [Suspect]
     Active Substance: FUROSEMIDE
     Indication: ANAEMIA
     Route: 041
     Dates: start: 20210203, end: 20210308
  20. HALFDIGOXIN [Suspect]
     Active Substance: DIGOXIN
     Indication: ANAEMIA
     Route: 048
     Dates: start: 20210109, end: 20210214
  21. EPLERENONE. [Suspect]
     Active Substance: EPLERENONE
     Indication: ANAEMIA
     Route: 048
     Dates: start: 20210110, end: 20210214
  22. VALSARTAN. [Suspect]
     Active Substance: VALSARTAN
     Indication: ANAEMIA
     Route: 048
     Dates: start: 20210113, end: 20210214
  23. POTASSIUM CANRENOATE [Suspect]
     Active Substance: CANRENOATE POTASSIUM
     Indication: ANAEMIA
     Route: 041
     Dates: start: 20201226, end: 20210118
  24. TRANSAMIN [Suspect]
     Active Substance: TRANEXAMIC ACID
     Indication: MYELODYSPLASTIC SYNDROME
     Route: 041
     Dates: start: 20210213, end: 20210223
  25. HEPARIN [Suspect]
     Active Substance: HEPARIN SODIUM
     Indication: ANAEMIA
     Route: 041
     Dates: start: 20201226, end: 20210118
  26. ADONA [CARBAZOCHROME SODIUM SULFONATE] [Suspect]
     Active Substance: CARBAZOCHROME SODIUM SULFONATE
     Indication: MYELODYSPLASTIC SYNDROME
     Route: 041
     Dates: start: 20210213, end: 20210223
  27. FERROUS SULFATE. [Suspect]
     Active Substance: FERROUS SULFATE
     Indication: ANAEMIA
     Route: 048
     Dates: start: 20200130, end: 20200206
  28. SAMSCA [Suspect]
     Active Substance: TOLVAPTAN
     Indication: ANAEMIA
     Route: 048
     Dates: start: 20201226, end: 20210214
  29. LASIX [Suspect]
     Active Substance: FUROSEMIDE
     Indication: ANAEMIA
     Route: 041
     Dates: start: 20201226, end: 20210118
  30. DOBUPUM [Suspect]
     Active Substance: DOBUTAMINE HYDROCHLORIDE
     Indication: ANAEMIA
     Route: 041
     Dates: start: 20210104, end: 20210118
  31. AMLODIPINE [Concomitant]
     Active Substance: AMLODIPINE BESYLATE
     Indication: HYPERTENSION
     Route: 048
     Dates: end: 20210213

REACTIONS (11)
  - Myelodysplastic syndrome [Fatal]
  - Platelet count decreased [Fatal]
  - Spinal fracture [Recovered/Resolved]
  - Traumatic intracranial haemorrhage [Fatal]
  - Fall [Recovered/Resolved]
  - Radius fracture [Recovered/Resolved]
  - Neutropenia [Recovered/Resolved]
  - Anaemia [Fatal]
  - Nausea [Recovered/Resolved]
  - Constipation [Recovered/Resolved]
  - Cardiac failure [Not Recovered/Not Resolved]

NARRATIVE: CASE EVENT DATE: 20181213
